FAERS Safety Report 7905809-5 (Version None)
Quarter: 2011Q4

REPORT INFORMATION
  Report Type: 
  Country: None (occurrence: None)
  Receive Date: 20111110
  Receipt Date: 20111028
  Transmission Date: 20120403
  Serious: Yes (Other)
  Sender: FDA-Public Use
  Company Number: CA-JNJFOC-20111100433

PATIENT
  Sex: Female
  Weight: 48.99 kg

DRUGS (1)
  1. REMICADE [Suspect]
     Indication: CROHN'S DISEASE
     Dosage: DOSE REPORTED AS Q 6-8 WEEKS
     Route: 042
     Dates: start: 20050101

REACTIONS (4)
  - HERPES ZOSTER [None]
  - PYREXIA [None]
  - VIRAL INFECTION [None]
  - NAUSEA [None]
